FAERS Safety Report 6142735-9 (Version None)
Quarter: 2009Q2

REPORT INFORMATION
  Report Type: 
  Country: None (occurrence: None)
  Receive Date: 20090403
  Receipt Date: 20090326
  Transmission Date: 20091009
  Serious: Yes (Other)
  Sender: FDA-Public Use
  Company Number: US-AMGEN-QUU336941

PATIENT
  Sex: Female
  Weight: 96.6 kg

DRUGS (12)
  1. ENBREL [Suspect]
     Indication: RHEUMATOID ARTHRITIS
     Route: 058
     Dates: start: 20021001
  2. METHOTREXATE [Concomitant]
     Route: 048
     Dates: start: 20060201
  3. FLUOXETINE [Concomitant]
     Route: 048
  4. METOPROLOL [Concomitant]
     Route: 048
  5. FOLIC ACID [Concomitant]
     Route: 048
  6. NORETHINDRONE [Concomitant]
  7. LISINOPRIL [Concomitant]
     Route: 048
  8. PREVACID [Concomitant]
     Route: 048
  9. CALCIUM [Concomitant]
  10. IRON [Concomitant]
  11. LOVAZA [Concomitant]
  12. MAGNESIUM SULFATE [Concomitant]

REACTIONS (13)
  - ACUTE RESPIRATORY FAILURE [None]
  - AORTIC VALVE INCOMPETENCE [None]
  - CHRONIC RESPIRATORY FAILURE [None]
  - HYPERLIPIDAEMIA [None]
  - HYPERTENSION [None]
  - HYPOAESTHESIA [None]
  - MITRAL VALVE INCOMPETENCE [None]
  - PALPITATIONS [None]
  - PERICARDIAL EFFUSION [None]
  - PRODUCTIVE COUGH [None]
  - PULMONARY HYPERTENSION [None]
  - PULMONARY VALVE INCOMPETENCE [None]
  - TRICUSPID VALVE INCOMPETENCE [None]
